FAERS Safety Report 6128415-4 (Version None)
Quarter: 2009Q1

REPORT INFORMATION
  Report Type: 
  Country: None (occurrence: None)
  Receive Date: 20090323
  Receipt Date: 20090311
  Transmission Date: 20090719
  Serious: Yes (Other)
  Sender: FDA-Public Use
  Company Number: JP-ROCHE-622376

PATIENT
  Age: 36 Year
  Sex: Female

DRUGS (3)
  1. DIAZEPAM [Suspect]
     Indication: DRUG USE FOR UNKNOWN INDICATION
     Route: 065
     Dates: start: 20040601, end: 20041101
  2. DOGMATYL [Suspect]
     Indication: DRUG USE FOR UNKNOWN INDICATION
     Route: 065
     Dates: start: 20040601, end: 20041101
  3. GLUCOSE/SODIUM CHLORIDE [Concomitant]
     Dosage: TRADE NAME REPORTED AS REPLAS (GLUCOSE, SODIUM CHLORIDE AND SODIUM LACTATE).
     Dates: start: 20040601, end: 20041101

REACTIONS (2)
  - IMMOBILE [None]
  - PYREXIA [None]
